FAERS Safety Report 8425651-9 (Version None)
Quarter: 2012Q2

REPORT INFORMATION
  Report Type: 
  Country: None (occurrence: None)
  Receive Date: 20120611
  Receipt Date: 20120528
  Transmission Date: 20120825
  Serious: Yes (Other)
  Sender: FDA-Public Use
  Company Number: PHHY2012FI048726

PATIENT
  Age: 47 Year
  Sex: Female

DRUGS (8)
  1. BEVACIZUMAB [Suspect]
  2. CAPECITABINE [Suspect]
  3. ETOPOSIDE [Suspect]
  4. TEMOZOLOMIDE [Suspect]
  5. OXALIPLATIN [Suspect]
  6. IRINOTECAN HCL [Suspect]
  7. CISPLATIN [Suspect]
  8. SANDOSTATIN LAR [Suspect]
     Indication: NEUROENDOCRINE CARCINOMA

REACTIONS (2)
  - BREAST CANCER [None]
  - CONCOMITANT DISEASE PROGRESSION [None]
